FAERS Safety Report 8534902-1 (Version None)
Quarter: 2012Q3

REPORT INFORMATION
  Report Type: 
  Country: None (occurrence: None)
  Receive Date: 20120724
  Receipt Date: 20120516
  Transmission Date: 20120928
  Serious: No
  Sender: FDA-Public Use
  Company Number: US-B.I. PHARMACEUTICALS,INC./RIDGEFIELD-2011-BP-18033BP

PATIENT
  Sex: Male

DRUGS (15)
  1. TRANDOLAPRIL [Concomitant]
     Indication: HYPERTENSION
     Dosage: 4 MG
     Route: 048
  2. METOPROLOL SUCCINATE [Concomitant]
     Indication: ATRIAL FIBRILLATION
  3. PRADAXA [Suspect]
     Indication: ATRIAL FIBRILLATION
     Dosage: 300 MG
     Route: 048
  4. ALEVE [Concomitant]
     Indication: ARTHRITIS
     Route: 048
  5. MOTRIN PM [Concomitant]
     Indication: INSOMNIA
     Route: 048
  6. ASPIRIN [Concomitant]
     Indication: PROPHYLAXIS
     Dosage: 325 MG
     Route: 048
  7. KLONOPIN [Concomitant]
     Indication: INSOMNIA
     Dosage: 0.5 MG
     Route: 048
  8. FISH OIL [Concomitant]
     Indication: PROPHYLAXIS
     Route: 048
  9. HYDRALAZINE HCL [Concomitant]
     Indication: HYPERTENSION
     Dosage: 50 MG
     Route: 048
  10. HYDROCHLOROTHIAZIDE [Concomitant]
     Indication: HYPERTENSION
     Dosage: 12.5 MG
     Route: 048
  11. VYTORIN [Concomitant]
     Indication: BLOOD CHOLESTEROL INCREASED
     Route: 048
  12. VYTORIN [Concomitant]
     Indication: HYPERLIPIDAEMIA
  13. CELEBREX [Concomitant]
     Indication: ARTHRITIS
     Dosage: 200 MG
     Route: 048
  14. METOPROLOL SUCCINATE [Concomitant]
     Indication: HYPERTENSION
     Dosage: 100 MG
     Route: 048
  15. ASPIRIN [Concomitant]
     Indication: CARDIAC DISORDER
     Dosage: 81 MG
     Route: 048

REACTIONS (4)
  - CONTUSION [None]
  - RASH GENERALISED [None]
  - SOMNOLENCE [None]
  - EYE HAEMORRHAGE [None]
